FAERS Safety Report 8692130 (Version 2)
Quarter: 2012Q4

REPORT INFORMATION
  Report Type: Spontaneous
  Country: DE (occurrence: None)
  Receive Date: 20120712
  Receipt Date: 20120827
  Transmission Date: 20130627
  Serious: Yes (Other)
  Sender: FDA-Public Use
  Company Number: SP05872

PATIENT
  Age: 43 Year
  Sex: Female

DRUGS (1)
  1. XIFAXAN [Suspect]
     Dosage: ORAL
     Route: 048
     Dates: start: 201111

REACTIONS (1)
  - THROMBOCYTOPENIA [None]
